FAERS Safety Report 15093160 (Version 2)
Quarter: 2018Q3

REPORT INFORMATION
  Report Type: Spontaneous
  Country: US (occurrence: GB)
  Receive Date: 20180629
  Receipt Date: 20180704
  Transmission Date: 20181010
  Serious: Yes (Death, Other)
  Sender: FDA-Public Use
  Company Number: US-SUNOVION-2018SUN002540

PATIENT

DRUGS (1)
  1. GLYCOPYRROLATE. [Suspect]
     Active Substance: GLYCOPYRROLATE
     Indication: BRADYCARDIA
     Route: 065

REACTIONS (5)
  - Cardiac arrest [Fatal]
  - Breath sounds absent [Unknown]
  - Product use in unapproved indication [Unknown]
  - Liver transplant rejection [Fatal]
  - Circulatory collapse [Unknown]
